APPROVED DRUG PRODUCT: ORSERDU
Active Ingredient: ELACESTRANT HYDROCHLORIDE
Strength: EQ 345MG BASE
Dosage Form/Route: TABLET;ORAL
Application: N217639 | Product #002
Applicant: STEMLINE THERAPEUTICS INC
Approved: Jan 27, 2023 | RLD: Yes | RS: Yes | Type: RX

PATENTS:
Patent 11819480 | Expires: Feb 28, 2037
Patent 10420734 | Expires: Oct 3, 2036
Patent 7612114 | Expires: Aug 18, 2026
Patent 10745343 | Expires: Jan 5, 2038
Patent 10071066 | Expires: Oct 10, 2034
Patent 11779552 | Expires: Oct 10, 2034
Patent 10385008 | Expires: Jan 5, 2038

EXCLUSIVITY:
Code: NCE | Date: Jan 27, 2028